FAERS Safety Report 14238283 (Version 1)
Quarter: 2017Q4

REPORT INFORMATION
  Report Type: Spontaneous
  Country: US (occurrence: US)
  Receive Date: 20171130
  Receipt Date: 20171130
  Transmission Date: 20180321
  Serious: No
  Sender: FDA-Public Use
  Company Number: US-PFIZER INC-2017508911

PATIENT
  Sex: Female
  Weight: 52.52 kg

DRUGS (11)
  1. XALKORI [Suspect]
     Active Substance: CRIZOTINIB
     Indication: LUNG CARCINOMA CELL TYPE UNSPECIFIED STAGE IV
     Dosage: 250 MG, TWICE DAILY
  2. MEGESTROL [Concomitant]
     Active Substance: MEGESTROL
     Dosage: 357 MG, 2X/DAY (400MG/10ML 400MG/10ML  (10 ML))
     Route: 048
  3. CARBOPLATINUM [Suspect]
     Active Substance: CARBOPLATIN
     Dosage: UNK, CYCLIC (3 CYCLES)
  4. ALECENSA [Concomitant]
     Active Substance: ALECTINIB HYDROCHLORIDE
     Dosage: 600 MG, 2X/DAY (ADMINISTER WITH A MEAL/FOOD)
     Route: 048
  5. FOLIC ACID. [Concomitant]
     Active Substance: FOLIC ACID
     Dosage: 1 MG, DAILY
     Route: 048
  6. DEXAMETHASONE. [Concomitant]
     Active Substance: DEXAMETHASONE
     Dosage: 4 MG, 2X/DAY (STARTING DAY BEFORE CHEMO FOR 3 DAYS)
     Route: 048
  7. LORAZEPAM. [Concomitant]
     Active Substance: LORAZEPAM
     Dosage: 1 MG, 3X/DAY
     Route: 048
  8. ONDANSETRON [Concomitant]
     Active Substance: ONDANSETRON
     Indication: NAUSEA
     Dosage: 8 MG, AS NEEDED
     Route: 048
  9. ONDANSETRON [Concomitant]
     Active Substance: ONDANSETRON
     Indication: VOMITING
  10. PEMETREXED. [Suspect]
     Active Substance: PEMETREXED
     Dosage: UNK, CYCLIC (3 CYCLES)
     Dates: start: 20170822, end: 20171024
  11. ZYKADIA [Concomitant]
     Active Substance: CERITINIB
     Dosage: 750 MG, CYCLIC (TAKE 5 PO DAY 1-5, DAY 8-12 EVERY 28 DAYS)

REACTIONS (5)
  - Dysphonia [Unknown]
  - Weight decreased [Unknown]
  - Neoplasm progression [Unknown]
  - Cough [Unknown]
  - Hypoaesthesia [Unknown]
